FAERS Safety Report 11345418 (Version 3)
Quarter: 2015Q3

REPORT INFORMATION
  Report Type: Spontaneous
  Country: CN (occurrence: CN)
  Receive Date: 20150806
  Receipt Date: 20150915
  Transmission Date: 20151125
  Serious: Yes (Hospitalization, Other)
  Sender: FDA-Public Use
  Company Number: PHHY2015CN093858

PATIENT
  Age: 75 Year
  Sex: Male

DRUGS (7)
  1. BULUOFEN [Concomitant]
     Indication: ANTIPYRESIS
     Dosage: 0.2 G, Q12H
     Route: 048
     Dates: start: 20150724, end: 20150724
  2. BULUOFEN [Concomitant]
     Indication: ANTIINFLAMMATORY THERAPY
  3. POTASSIUM PHOSPHATE [Concomitant]
     Active Substance: POTASSIUM PHOSPHATE
     Indication: MINERAL SUPPLEMENTATION
     Dosage: 2 ML, QD
     Route: 042
     Dates: start: 20150724, end: 20150724
  4. SALMONCAL [Concomitant]
     Indication: OSTEOPOROSIS
     Dosage: 1 ML, QD
     Route: 030
     Dates: start: 20150724, end: 20150724
  5. GLUCOSE + SODIUM CHLORIDE [Concomitant]
     Indication: INFUSION
     Dosage: 500 ML, QD
     Route: 042
     Dates: start: 20150724, end: 20150724
  6. ZOLEDRONIC ACID [Suspect]
     Active Substance: ZOLEDRONIC ACID
     Indication: OSTEOPOROSIS
     Dosage: 100 ML, ONCE/SINGLE
     Route: 042
     Dates: start: 20150724
  7. SODIUM CHLORIDE. [Concomitant]
     Active Substance: SODIUM CHLORIDE
     Indication: STERILISATION
     Dosage: 250 ML, QD
     Route: 042
     Dates: start: 20150724, end: 20150724

REACTIONS (5)
  - Pyrexia [Recovered/Resolved]
  - Chest discomfort [Recovered/Resolved]
  - Asthma [Recovered/Resolved]
  - Pneumonia [Recovered/Resolved]
  - Dyspnoea [Recovered/Resolved]

NARRATIVE: CASE EVENT DATE: 20150724
